FAERS Safety Report 5853854-6 (Version None)
Quarter: 2008Q3

REPORT INFORMATION
  Report Type: 
  Country: None (occurrence: None)
  Receive Date: 20080822
  Receipt Date: 20080812
  Transmission Date: 20090109
  Serious: Yes (Life-Threatening, Hospitalization)
  Sender: FDA-Public Use
  Company Number: US-JNJFOC-20071100189

PATIENT
  Sex: Female
  Weight: 60.7 kg

DRUGS (10)
  1. TRAMADOL HYDROCHLORIDE [Suspect]
     Route: 048
  2. TRAMADOL HYDROCHLORIDE [Suspect]
     Indication: OSTEOARTHRITIS
     Route: 048
  3. MELOXICAM [Suspect]
     Route: 048
  4. MELOXICAM [Suspect]
     Indication: OSTEOARTHRITIS
     Route: 048
  5. ASPIRIN [Concomitant]
     Route: 065
  6. ENALAPRIL HCT [Concomitant]
     Route: 065
  7. LEVOXYL [Concomitant]
     Route: 065
  8. METOPROLOL TARTRATE [Concomitant]
     Route: 065
  9. COLACE [Concomitant]
     Indication: CONSTIPATION
     Route: 065
  10. SENOKOT [Concomitant]
     Indication: CONSTIPATION
     Route: 065

REACTIONS (1)
  - OROPHARYNGEAL SWELLING [None]
